FAERS Safety Report 5534260-0 (Version None)
Quarter: 2007Q4

REPORT INFORMATION
  Report Type: 
  Country: None (occurrence: None)
  Receive Date: 20071205
  Receipt Date: 20071123
  Transmission Date: 20080405
  Serious: Yes (Other)
  Sender: FDA-Public Use
  Company Number: NL-JNJFOC-20071109708

PATIENT
  Sex: Male
  Weight: 87 kg

DRUGS (4)
  1. REMICADE [Suspect]
     Route: 042
  2. REMICADE [Suspect]
     Indication: PSORIASIS
     Route: 042
  3. RAPTIVA [Concomitant]
     Indication: PSORIASIS
     Route: 058
  4. ENBREL [Concomitant]
     Indication: PSORIASIS

REACTIONS (3)
  - BODY TEMPERATURE INCREASED [None]
  - HEADACHE [None]
  - SKIN REACTION [None]
